FAERS Safety Report 6727435-6 (Version None)
Quarter: 2010Q2

REPORT INFORMATION
  Report Type: 
  Country: None (occurrence: None)
  Receive Date: 20100517
  Receipt Date: 20100512
  Transmission Date: 20101027
  Serious: Yes (Death)
  Sender: FDA-Public Use
  Company Number: CO-SANOFI-AVENTIS-2010SA027680

PATIENT
  Age: 52 Year
  Sex: Male

DRUGS (3)
  1. CLEXANE [Suspect]
     Route: 058
     Dates: start: 20100510, end: 20100510
  2. CLOPIDOGREL [Concomitant]
  3. ASPIRIN [Concomitant]

REACTIONS (1)
  - THROMBOSIS IN DEVICE [None]
